FAERS Safety Report 21763872 (Version 2)
Quarter: 2022Q4

REPORT INFORMATION
  Report Type: Spontaneous
  Country: DE (occurrence: DE)
  Receive Date: 20221222
  Receipt Date: 20221230
  Transmission Date: 20230113
  Serious: Yes (Other)
  Sender: FDA-Public Use
  Company Number: DE-BFARM-22009717

PATIENT
  Sex: Male

DRUGS (1)
  1. CIPROFLOXACIN [Suspect]
     Active Substance: CIPROFLOXACIN
     Indication: Arthropod bite
     Dosage: 500 MILLIGRAM, BID
     Route: 065
     Dates: start: 202108

REACTIONS (3)
  - Tendon rupture [Unknown]
  - Tendon disorder [Unknown]
  - Sick leave [Unknown]

NARRATIVE: CASE EVENT DATE: 20211201
